FAERS Safety Report 10157759 (Version 12)
Quarter: 2018Q4

REPORT INFORMATION
  Report Type: Report from Study
  Country: US (occurrence: US)
  Receive Date: 20140507
  Receipt Date: 20181003
  Transmission Date: 20190204
  Serious: Yes (Life-Threatening, Hospitalization, Other)
  Sender: FDA-Public Use
  Company Number: US-ACTELION-A-NJ2014-98374

PATIENT
  Age: 60 Year
  Sex: Female
  Weight: 56.69 kg

DRUGS (5)
  1. VELETRI [Suspect]
     Active Substance: EPOPROSTENOL
     Indication: PULMONARY ARTERIAL HYPERTENSION
     Dosage: 20 NG/KG, PER MIN
     Route: 042
     Dates: start: 20120829
  2. WARFARIN [Concomitant]
     Active Substance: WARFARIN
  3. REVATIO [Suspect]
     Active Substance: SILDENAFIL CITRATE
     Indication: PRODUCT USED FOR UNKNOWN INDICATION
     Route: 065
  4. LETAIRIS [Concomitant]
     Active Substance: AMBRISENTAN
  5. VELETRI [Suspect]
     Active Substance: EPOPROSTENOL
     Dosage: 20 NG/KG, PER MIN
     Route: 042
     Dates: start: 20120914

REACTIONS (17)
  - Renal cancer [Unknown]
  - Colon cancer [Unknown]
  - Abdominal pain [Unknown]
  - Dyspnoea exertional [Unknown]
  - Emergency care [Unknown]
  - Bladder neoplasm [Not Recovered/Not Resolved]
  - Catheter site rash [Unknown]
  - Gastrointestinal disorder [Unknown]
  - Frequent bowel movements [Unknown]
  - Bladder cancer [Unknown]
  - Pneumonia [Unknown]
  - Pulmonary oedema [Unknown]
  - Headache [Recovered/Resolved]
  - Nephrectomy [Unknown]
  - Diarrhoea [Unknown]
  - Weight decreased [Unknown]
  - Colectomy [Unknown]

NARRATIVE: CASE EVENT DATE: 20140327
